FAERS Safety Report 25593518 (Version 1)
Quarter: 2025Q3

REPORT INFORMATION
  Report Type: Report from Study
  Country: US (occurrence: US)
  Receive Date: 20250722
  Receipt Date: 20250722
  Transmission Date: 20251020
  Serious: Yes (Other)
  Sender: ABBVIE
  Company Number: US-ABBVIE-6377025

PATIENT
  Age: 76 Year
  Sex: Male

DRUGS (1)
  1. IMBRUVICA [Suspect]
     Active Substance: IBRUTINIB
     Indication: Waldenstrom^s macroglobulinaemia
     Route: 048
     Dates: start: 202501

REACTIONS (6)
  - Eye operation [Unknown]
  - Nephrolithiasis [Unknown]
  - Mobility decreased [Unknown]
  - General physical health deterioration [Unknown]
  - Depressed mood [Unknown]
  - Impaired work ability [Unknown]

NARRATIVE: CASE EVENT DATE: 20250101
